FAERS Safety Report 9861156 (Version 1)
Quarter: 2014Q1

REPORT INFORMATION
  Report Type: Spontaneous
  Country: US (occurrence: None)
  Receive Date: 20140131
  Receipt Date: 20140131
  Transmission Date: 20141002
  Serious: Yes (Life-Threatening, Hospitalization)
  Sender: FDA-Public Use
  Company Number: None

PATIENT
  Sex: Female
  Weight: 59.88 kg

DRUGS (1)
  1. HUMIRA [Suspect]
     Indication: PSORIASIS
     Dosage: INTO THE MUSCLE

REACTIONS (7)
  - Bronchitis [None]
  - Nasopharyngitis [None]
  - Pneumonia [None]
  - Immune system disorder [None]
  - Malaise [None]
  - Blood iron decreased [None]
  - Haemoglobin decreased [None]
